FAERS Safety Report 9797461 (Version 1)
Quarter: 2014Q1

REPORT INFORMATION
  Report Type: Spontaneous
  Country: FR (occurrence: FR)
  Receive Date: 20140106
  Receipt Date: 20140106
  Transmission Date: 20141002
  Serious: Yes (Other)
  Sender: FDA-Public Use
  Company Number: ALCN2013FR006359

PATIENT
  Age: 70 Year
  Sex: Female

DRUGS (2)
  1. TRAVATAN PQ [Suspect]
     Indication: GLAUCOMA
     Route: 047
  2. AZOPT [Suspect]
     Indication: GLAUCOMA
     Route: 047

REACTIONS (1)
  - Cystoid macular oedema [Recovering/Resolving]
